FAERS Safety Report 4601725-5 (Version None)
Quarter: 2005Q1

REPORT INFORMATION
  Report Type: 
  Country: None (occurrence: None)
  Receive Date: 20050128
  Receipt Date: 20041028
  Transmission Date: 20050727
  Serious: No
  Sender: FDA-Public Use
  Company Number: WAES 0410USA04333

PATIENT
  Age: 45 Year
  Sex: Female
  Weight: 61.2356 kg

DRUGS (5)
  1. EMEND [Suspect]
     Dosage: PO
     Route: 048
  2. CHOP [Concomitant]
  3. RITUXAN [Concomitant]
  4. [THERAPY UNSPECIFIED] [Concomitant]
  5. DEXAMETHASONE [Concomitant]

REACTIONS (2)
  - DRY MOUTH [None]
  - TINNITUS [None]
